FAERS Safety Report 8864763 (Version 1)
Quarter: 2012Q4

REPORT INFORMATION
  Report Type: 
  Country: US (occurrence: US)
  Receive Date: 20121024
  Receipt Date: 20121024
  Transmission Date: 20130627
  Serious: No
  Sender: FDA-Public Use
  Company Number: US-AMGEN-USASP2011069316

PATIENT
  Age: 86 Year
  Sex: Female

DRUGS (1)
  1. ENBREL [Suspect]
     Indication: PSORIASIS
     Dosage: 50 mg, qwk
     Dates: start: 20031001, end: 20111219

REACTIONS (2)
  - Glycosylated haemoglobin increased [Not Recovered/Not Resolved]
  - Back injury [Not Recovered/Not Resolved]
